FAERS Safety Report 7562390-0 (Version None)
Quarter: 2011Q2

REPORT INFORMATION
  Report Type: 
  Country: None (occurrence: None)
  Receive Date: 20110614
  Receipt Date: 20110601
  Transmission Date: 20111010
  Serious: Yes (Other)
  Sender: FDA-Public Use
  Company Number: 2011MA006654

PATIENT
  Age: 44 Year
  Sex: Female

DRUGS (1)
  1. CARBAMAZEPINE [Suspect]
     Indication: CONVULSION

REACTIONS (4)
  - HEPATIC NEOPLASM [None]
  - TUMOUR HAEMORRHAGE [None]
  - ADENOMA BENIGN [None]
  - HEPATIC ADENOMA [None]
